FAERS Safety Report 4786995-5 (Version None)
Quarter: 2005Q4

REPORT INFORMATION
  Report Type: 
  Country: None (occurrence: None)
  Receive Date: 20051004
  Receipt Date: 20050922
  Transmission Date: 20060501
  Serious: Yes (Other)
  Sender: FDA-Public Use
  Company Number: J200503219

PATIENT
  Age: 47 Year
  Sex: Female

DRUGS (5)
  1. SAWACILLIN [Suspect]
     Indication: DRUG USE FOR UNKNOWN INDICATION
     Dosage: 250MG PER DAY
     Route: 048
     Dates: start: 20050910
  2. DASEN [Suspect]
     Indication: LARYNGOPHARYNGITIS
     Dosage: 30MG PER DAY
     Route: 048
     Dates: start: 20050910
  3. AZUNOL [Concomitant]
     Indication: LARYNGOPHARYNGITIS
     Dates: start: 20050910
  4. CEFAZOLIN [Concomitant]
  5. BETAMETHASONE SODIUM PHOSPHATE [Concomitant]

REACTIONS (10)
  - BODY TEMPERATURE INCREASED [None]
  - DRY SKIN [None]
  - ERYTHEMA [None]
  - EYELID FUNCTION DISORDER [None]
  - EYELID OEDEMA [None]
  - HOT FLUSH [None]
  - OEDEMA [None]
  - PHARYNGOLARYNGEAL PAIN [None]
  - PRURITUS [None]
  - SWELLING FACE [None]
